FAERS Safety Report 4379063-8 (Version None)
Quarter: 2004Q2

REPORT INFORMATION
  Report Type: 
  Country: None (occurrence: None)
  Receive Date: 20040610
  Receipt Date: 20040526
  Transmission Date: 20050107
  Serious: Yes (Death)
  Sender: FDA-Public Use
  Company Number: DE-JNJFOC-20040601340

PATIENT

DRUGS (5)
  1. ABCIXIMAB (ABCIXIMAB) INJECTION [Suspect]
     Indication: ACUTE MYOCARDIAL INFARCTION
     Dosage: SEE IMAGE
     Route: 042
  2. RETEPLASE (RETEPLASE) LYOPHILIZED POWDER [Suspect]
     Indication: ACUTE MYOCARDIAL INFARCTION
     Dosage: 5 IU, 2 IN 1 TOTAL, INTRAVENOUS
     Route: 042
  3. ASPIRIN [Concomitant]
  4. HEPARIN [Concomitant]
  5. CLOPIDOGREL (CLOPIDOGREL) [Concomitant]

REACTIONS (1)
  - DRUG INTERACTION [None]
